FAERS Safety Report 5679166-1 (Version None)
Quarter: 2008Q1

REPORT INFORMATION
  Report Type: 
  Country: None (occurrence: None)
  Receive Date: 20080321
  Receipt Date: 20080317
  Transmission Date: 20080703
  Serious: Yes (Life-Threatening, Other)
  Sender: FDA-Public Use
  Company Number: TAP2008Q00270

PATIENT
  Age: 39 Year
  Sex: Female

DRUGS (3)
  1. LUPRON DEPOT [Suspect]
     Indication: DRUG USE FOR UNKNOWN INDICATION
     Dosage: 3.75 MG, ONCE, INTRAMUSCULAR
     Route: 030
     Dates: start: 20070925, end: 20070925
  2. MINOCIN [Concomitant]
  3. PREDNISONE TAB [Concomitant]

REACTIONS (4)
  - BONE MARROW FAILURE [None]
  - BONE MARROW TRANSPLANT [None]
  - PALLOR [None]
  - PANCYTOPENIA [None]
